FAERS Safety Report 17457986 (Version 5)
Quarter: 2020Q3

REPORT INFORMATION
  Report Type: Report from Study
  Country: FR (occurrence: FR)
  Receive Date: 20200225
  Receipt Date: 20200924
  Transmission Date: 20201102
  Serious: Yes (Other)
  Sender: FDA-Public Use
  Company Number: NVSC2019FR084394

PATIENT
  Age: 2 Month
  Sex: Male
  Weight: 5.29 kg

DRUGS (3)
  1. ZOLGENSMA [Suspect]
     Active Substance: ONASEMNOGENE ABEPARVOVEC-XIOI
     Indication: SPINAL MUSCULAR ATROPHY
     Dosage: UNK, ONCE/SINGLE (6.1 X 10E14) (CENTRAL LINE INFUSION)
     Route: 041
     Dates: start: 20191218
  2. PALIVIZUMAB [Concomitant]
     Active Substance: PALIVIZUMAB
     Indication: PRODUCT USED FOR UNKNOWN INDICATION
     Dosage: 75 MG, QMO
     Route: 065
     Dates: start: 20200123
  3. SOLUPRED [Concomitant]
     Indication: PROPHYLAXIS
     Dosage: 5 MG, QD
     Route: 048
     Dates: start: 20191218

REACTIONS (7)
  - Leukopenia [Unknown]
  - Incorrect route of product administration [Unknown]
  - Rectal haemorrhage [Recovered/Resolved]
  - Aspartate aminotransferase increased [Unknown]
  - Thrombocytopenia [Unknown]
  - Troponin I increased [Not Recovered/Not Resolved]
  - Hepatocellular injury [Unknown]

NARRATIVE: CASE EVENT DATE: 20191218
